FAERS Safety Report 4315278-2 (Version None)
Quarter: 2004Q1

REPORT INFORMATION
  Report Type: 
  Country: None (occurrence: None)
  Receive Date: 20040311
  Receipt Date: 20040209
  Transmission Date: 20041129
  Serious: Yes (Other)
  Sender: FDA-Public Use
  Company Number: 200411875GDDC

PATIENT
  Age: 77 Year
  Sex: Male

DRUGS (12)
  1. ARAVA [Suspect]
     Indication: RHEUMATOID ARTHRITIS
     Route: 048
  2. HYDROXYCHLOROQUINE [Concomitant]
     Route: 048
  3. PREDNISOLONE [Concomitant]
  4. MELOXICAM [Concomitant]
     Route: 048
  5. AMLODIPINE [Concomitant]
     Route: 048
  6. SALBUTAMOL [Concomitant]
     Dosage: DOSE: UNK
  7. SEREVENT [Concomitant]
     Dosage: DOSE: UNK
  8. BENDROFLUAZIDE [Concomitant]
  9. ASPIRIN [Concomitant]
     Route: 048
  10. FRUSEMIDE [Concomitant]
     Route: 048
  11. AMITRIPTYLINE HCL [Concomitant]
     Route: 048
  12. CYCLOPHOSPHAMIDE [Concomitant]
     Dosage: DOSE: PULSE THERAPY

REACTIONS (3)
  - CYANOSIS [None]
  - NECROSIS [None]
  - RHEUMATOID VASCULITIS [None]
